FAERS Safety Report 15978445 (Version 2)
Quarter: 2019Q1

REPORT INFORMATION
  Report Type: Spontaneous
  Country: IR (occurrence: IR)
  Receive Date: 20190219
  Receipt Date: 20190226
  Transmission Date: 20190418
  Serious: Yes (Other)
  Sender: FDA-Public Use
  Company Number: IR-LUPIN PHARMACEUTICALS INC.-2019-00890

PATIENT
  Age: 50 Year
  Sex: Male

DRUGS (3)
  1. TRAMADOL. [Suspect]
     Active Substance: TRAMADOL
     Dosage: UNK, DOSE DECREASED
     Route: 065
  2. TRAMADOL. [Suspect]
     Active Substance: TRAMADOL
     Indication: BACK PAIN
     Dosage: 50 MILLIGRAM, QD
     Route: 065
  3. TRAMADOL. [Suspect]
     Active Substance: TRAMADOL
     Dosage: 200 MILLIGRAM, QD
     Route: 065

REACTIONS (6)
  - Headache [Recovered/Resolved]
  - Drug dependence [Recovered/Resolved]
  - Musculoskeletal stiffness [Recovered/Resolved]
  - Agitation [Recovered/Resolved]
  - Rhinorrhoea [Recovered/Resolved]
  - Substance use disorder [Unknown]
